FAERS Safety Report 8583178-8 (Version None)
Quarter: 2012Q3

REPORT INFORMATION
  Report Type: 
  Country: None (occurrence: None)
  Receive Date: 20120727
  Receipt Date: 20120716
  Transmission Date: 20120928
  Serious: Yes (Other)
  Sender: FDA-Public Use
  Company Number: 2012AP002049

PATIENT
  Age: 55 Year
  Sex: Female

DRUGS (5)
  1. COLECALCIFEROL (COLECALCIFEROL) [Concomitant]
  2. ALENDRONATE SODIUM [Suspect]
     Indication: OSTEOPOROSIS
     Dosage: 70 MG;PO;QW
     Route: 048
     Dates: start: 20060101, end: 20090101
  3. ZOLEDRONIC ACID [Suspect]
     Indication: OSTEOPOROSIS
     Dosage: 5 MG;IVDRP
     Route: 041
     Dates: start: 20090201, end: 20100201
  4. CALCIUM CARBONATE [Concomitant]
  5. COLECALCIFEROL (COLECALCIFEROL) [Concomitant]

REACTIONS (11)
  - STRESS FRACTURE [None]
  - BURSITIS [None]
  - JOINT INJURY [None]
  - TREATMENT NONCOMPLIANCE [None]
  - HYPOPHOSPHATASIA [None]
  - FALL [None]
  - WRIST FRACTURE [None]
  - HYPERPHOSPHATAEMIA [None]
  - FEMUR FRACTURE [None]
  - RADIUS FRACTURE [None]
  - ULNA FRACTURE [None]
